FAERS Safety Report 9180179 (Version 1)
Quarter: 2013Q1

REPORT INFORMATION
  Report Type: Spontaneous
  Country: US (occurrence: US)
  Receive Date: 20130321
  Receipt Date: 20130321
  Transmission Date: 20140127
  Serious: No
  Sender: FDA-Public Use
  Company Number: US-009507513-1303USA008481

PATIENT
  Age: 85 Year
  Sex: Female

DRUGS (2)
  1. SIMVASTATIN TABLETS, USP [Suspect]
     Route: 048
  2. ASPIRIN [Concomitant]

REACTIONS (5)
  - Anger [Unknown]
  - Hypoaesthesia [Unknown]
  - Local swelling [Unknown]
  - Rash [Unknown]
  - Fatigue [Unknown]
